FAERS Safety Report 7500184-2 (Version None)
Quarter: 2011Q2

REPORT INFORMATION
  Report Type: 
  Country: None (occurrence: None)
  Receive Date: 20110524
  Receipt Date: 20100413
  Transmission Date: 20111010
  Serious: No
  Sender: FDA-Public Use
  Company Number: US-NOVEN-ALL1-2010-02201

PATIENT

DRUGS (2)
  1. DAYTRANA [Suspect]
     Dosage: 15 MG, 1X/DAY:QD
     Route: 062
     Dates: start: 20090701
  2. ALBUTEROL [Concomitant]
     Dosage: .083 %, AS REQ'D (EVERY 4 TO 6 HRS. AS NEEDED)
     Route: 055
     Dates: start: 20081028

REACTIONS (3)
  - WRONG TECHNIQUE IN DRUG USAGE PROCESS [None]
  - NO ADVERSE EVENT [None]
  - PRODUCT QUALITY ISSUE [None]
